FAERS Safety Report 19793090 (Version 2)
Quarter: 2022Q1

REPORT INFORMATION
  Report Type: Spontaneous
  Country: US (occurrence: US)
  Receive Date: 20210906
  Receipt Date: 20220208
  Transmission Date: 20220423
  Serious: No
  Sender: FDA-Public Use
  Company Number: US-ORGANON-O2109USA000136

PATIENT
  Age: 18 Year
  Sex: Female
  Weight: 61.678 kg

DRUGS (1)
  1. NEXPLANON [Suspect]
     Active Substance: ETONOGESTREL
     Indication: Contraception
     Dosage: 1 IMPLANT FOR 3 YEARS IN LEFT ARM
     Route: 059
     Dates: start: 20131007

REACTIONS (4)
  - Peripheral swelling [Not Recovered/Not Resolved]
  - Contusion [Not Recovered/Not Resolved]
  - Pain in extremity [Not Recovered/Not Resolved]
  - Incorrect product administration duration [Unknown]

NARRATIVE: CASE EVENT DATE: 20161008
